FAERS Safety Report 23447046 (Version 1)
Quarter: 2024Q1

REPORT INFORMATION
  Report Type: Spontaneous
  Country: US (occurrence: None)
  Receive Date: 20240126
  Receipt Date: 20240126
  Transmission Date: 20240409
  Serious: Yes (Death)
  Sender: FDA-Public Use
  Company Number: None

PATIENT
  Age: 62 Year
  Sex: Male
  Weight: 67.6 kg

DRUGS (1)
  1. CARBOPLATIN [Suspect]
     Active Substance: CARBOPLATIN

REACTIONS (5)
  - Pneumonitis [None]
  - Mental disorder [None]
  - Unresponsive to stimuli [None]
  - Respiratory rate decreased [None]
  - Apnoea [None]

NARRATIVE: CASE EVENT DATE: 20231130
